FAERS Safety Report 16365028 (Version 3)
Quarter: 2020Q2

REPORT INFORMATION
  Report Type: Spontaneous
  Country: TR (occurrence: TR)
  Receive Date: 20190529
  Receipt Date: 20200525
  Transmission Date: 20200713
  Serious: Yes (Hospitalization, Other)
  Sender: FDA-Public Use
  Company Number: TR-SUN PHARMACEUTICAL INDUSTRIES LTD-2019R1-209176

PATIENT
  Age: 73 Year
  Sex: Female

DRUGS (1)
  1. METHIMAZOLE. [Suspect]
     Active Substance: METHIMAZOLE
     Indication: HYPERTHYROIDISM
     Dosage: 5 MILLIGRAM, TID
     Route: 065

REACTIONS (8)
  - Cellulitis [Recovered/Resolved]
  - Necrosis ischaemic [Recovered/Resolved]
  - Ulcer [Recovered/Resolved]
  - Neutropenia [Recovered/Resolved]
  - Paronychia [Recovered/Resolved]
  - Lymphadenopathy [Recovered/Resolved]
  - Inflammation [Unknown]
  - Agranulocytosis [Recovered/Resolved]
